FAERS Safety Report 9455221 (Version 1)
Quarter: 2013Q3

REPORT INFORMATION
  Report Type: Report from Study
  Country: FR (occurrence: FR)
  Receive Date: 20130813
  Receipt Date: 20130813
  Transmission Date: 20140515
  Serious: Yes (Other)
  Sender: FDA-Public Use
  Company Number: FR-GENZYME-CAMP-1003068

PATIENT
  Age: 79 Year
  Sex: Male

DRUGS (2)
  1. CAMPATH [Suspect]
     Indication: PROLYMPHOCYTIC LEUKAEMIA
     Dosage: UNK
     Route: 065
     Dates: start: 200801, end: 200802
  2. CAMPATH [Suspect]
     Dosage: 30 MG, 3X/W
     Route: 042
     Dates: start: 20130530, end: 20130719

REACTIONS (1)
  - Disease progression [Unknown]
